FAERS Safety Report 15969703 (Version 1)
Quarter: 2019Q1

REPORT INFORMATION
  Report Type: Report from Study
  Country: US (occurrence: US)
  Receive Date: 20190215
  Receipt Date: 20190215
  Transmission Date: 20190418
  Serious: Yes (Hospitalization, Other)
  Sender: FDA-Public Use
  Company Number: US-AMAG PHARMACEUTICALS, INC.-AMAG201800680

PATIENT

DRUGS (1)
  1. MAKENA [Suspect]
     Active Substance: HYDROXYPROGESTERONE CAPROATE
     Indication: PREMATURE DELIVERY
     Dosage: 250 MG/ML, WEEKLY
     Route: 030
     Dates: end: 20180130

REACTIONS (6)
  - Gestational diabetes [Recovered/Resolved]
  - Premature delivery [Recovered/Resolved]
  - Product administration error [Unknown]
  - Fungal infection [Unknown]
  - Anaemia [Unknown]
  - Vulvovaginal dryness [Unknown]

NARRATIVE: CASE EVENT DATE: 201801
